FAERS Safety Report 19618630 (Version 2)
Quarter: 2022Q2

REPORT INFORMATION
  Report Type: Spontaneous
  Country: US (occurrence: None)
  Receive Date: 20210727
  Receipt Date: 20220621
  Transmission Date: 20220721
  Serious: No
  Sender: FDA-Public Use
  Company Number: US-ROCHE-2820003

PATIENT
  Sex: Female

DRUGS (6)
  1. CAPECITABINE [Suspect]
     Active Substance: CAPECITABINE
     Indication: Product used for unknown indication
     Route: 065
  2. TUKYSA [Suspect]
     Active Substance: TUCATINIB
     Indication: Breast cancer female
     Route: 065
     Dates: start: 20210223
  3. TUKYSA [Suspect]
     Active Substance: TUCATINIB
     Indication: Breast cancer metastatic
  4. TUKYSA [Suspect]
     Active Substance: TUCATINIB
     Indication: Metastases to central nervous system
  5. CALCIUM [Concomitant]
     Active Substance: CALCIUM
  6. ZOFRAN [Concomitant]
     Active Substance: ONDANSETRON HYDROCHLORIDE

REACTIONS (6)
  - Illness [Unknown]
  - Hepatic enzyme abnormal [Unknown]
  - Skin exfoliation [Unknown]
  - Vomiting [Unknown]
  - Nausea [Unknown]
  - Choking [Unknown]
